FAERS Safety Report 9420531 (Version 1)
Quarter: 2013Q3

REPORT INFORMATION
  Report Type: Spontaneous
  Country: US (occurrence: US)
  Receive Date: 20130725
  Receipt Date: 20130725
  Transmission Date: 20140515
  Serious: No
  Sender: FDA-Public Use
  Company Number: US-ABBOTT-13P-163-1098937-00

PATIENT
  Sex: Female

DRUGS (5)
  1. SYNTHROID [Suspect]
     Indication: PRODUCT USED FOR UNKNOWN INDICATION
     Dates: start: 201304
  2. AMLODIPINE [Suspect]
     Indication: HYPERTENSION
  3. LEXAPRO FILM-COATED TABLETS [Suspect]
     Indication: DEPRESSION
  4. LEVOTHYROXINE [Suspect]
     Indication: THYROID DISORDER
     Dosage: 50MCG: 5 DAYS A WEEK AND75MCG: 2 DAYS A WEEK
     Dates: end: 20130422
  5. LEVOXYL [Suspect]
     Indication: PRODUCT USED FOR UNKNOWN INDICATION

REACTIONS (5)
  - Malaise [Not Recovered/Not Resolved]
  - Breath odour [Unknown]
  - Skin odour abnormal [Unknown]
  - Drug interaction [Unknown]
  - Urinary tract infection [Unknown]
